FAERS Safety Report 6033783-8 (Version None)
Quarter: 2009Q1

REPORT INFORMATION
  Report Type: 
  Country: None (occurrence: None)
  Receive Date: 20090112
  Receipt Date: 20090105
  Transmission Date: 20090719
  Serious: Yes (Hospitalization)
  Sender: FDA-Public Use
  Company Number: US-RANBAXY-2009RR-20314

PATIENT
  Age: 17 Year
  Sex: Female

DRUGS (3)
  1. IBUPROFEN [Suspect]
     Indication: DYSMENORRHOEA
  2. ESCITALOPRAM [Suspect]
     Indication: DEPRESSION
     Dosage: 10 MG, UNK
  3. ESCITALOPRAM [Suspect]
     Dosage: 20 MG, UNK

REACTIONS (2)
  - NEPHRITIS ALLERGIC [None]
  - RENAL FAILURE [None]
